FAERS Safety Report 6376189-4 (Version None)
Quarter: 2009Q3

REPORT INFORMATION
  Report Type: 
  Country: None (occurrence: None)
  Receive Date: 20090918
  Receipt Date: 20090908
  Transmission Date: 20100115
  Serious: Yes (Life-Threatening, Hospitalization)
  Sender: FDA-Public Use
  Company Number: 2009EU003449

PATIENT
  Sex: Female

DRUGS (7)
  1. PROGRAF [Suspect]
     Indication: RENAL TRANSPLANT
     Dosage: 50 DF, TOTAL DOSE, ORAL; 2 MG, BID, ORAL
     Route: 048
     Dates: start: 20090722, end: 20090722
  2. PRAZEPAM [Suspect]
     Indication: RENAL TRANSPLANT
     Dosage: 1 DF,  /D, ORAL; 10 DF, TOTAL DOSE, ORAL
     Route: 048
  3. CELLCEPT [Suspect]
     Indication: RENAL TRANSPLANT
     Dosage: 3 DF, /D;
  4. LASILIX (FUROSEMIDE SODIUM) [Concomitant]
  5. SECTRAL [Concomitant]
  6. SOLUPRED (PREDNISILONE SODIUM SULFOBENZOATE) [Concomitant]
  7. INSULIN (INSULIN) [Concomitant]

REACTIONS (2)
  - SOMNOLENCE [None]
  - SUICIDE ATTEMPT [None]
